FAERS Safety Report 5361572-6 (Version None)
Quarter: 2007Q2

REPORT INFORMATION
  Report Type: 
  Country: None (occurrence: None)
  Receive Date: 20070619
  Receipt Date: 20070605
  Transmission Date: 20071010
  Serious: Yes (Other)
  Sender: FDA-Public Use
  Company Number: PHBS2007IL09602

PATIENT
  Age: 57 Year
  Sex: Female

DRUGS (2)
  1. VISCOTEARS (NVO) [Suspect]
  2. GENTEAL (NVO) [Suspect]

REACTIONS (3)
  - CONJUNCTIVAL HYPERAEMIA [None]
  - PUNCTATE KERATITIS [None]
  - VISUAL ACUITY REDUCED [None]
